FAERS Safety Report 25064917 (Version 1)
Quarter: 2025Q1

REPORT INFORMATION
  Report Type: Report from Study
  Country: US (occurrence: US)
  Receive Date: 20250311
  Receipt Date: 20250311
  Transmission Date: 20250408
  Serious: Yes (Other)
  Sender: ABBVIE
  Company Number: US-ABBVIE-6164449

PATIENT
  Sex: Male

DRUGS (1)
  1. CREON [Suspect]
     Active Substance: PANCRELIPASE AMYLASE\PANCRELIPASE LIPASE\PANCRELIPASE PROTEASE
     Indication: Product used for unknown indication
     Route: 048
     Dates: start: 20230801

REACTIONS (9)
  - Cerebrovascular accident [Unknown]
  - Pain in extremity [Unknown]
  - Road traffic accident [Unknown]
  - Anxiety [Unknown]
  - Cardiac perforation [Unknown]
  - Jaw fracture [Unknown]
  - Neck pain [Unknown]
  - Back pain [Unknown]
  - Intervertebral disc disorder [Unknown]
